FAERS Safety Report 11965627 (Version 2)
Quarter: 2016Q1

REPORT INFORMATION
  Report Type: Report from Study
  Country: AT (occurrence: AT)
  Receive Date: 20160127
  Receipt Date: 20160211
  Transmission Date: 20160526
  Serious: Yes (Hospitalization)
  Sender: FDA-Public Use
  Company Number: PHHO2015AT013725

PATIENT
  Age: 76 Year
  Sex: Female

DRUGS (7)
  1. CGS 20267 [Suspect]
     Active Substance: LETROZOLE
     Indication: BREAST CANCER
     Dosage: 2.5 MG, QD
     Route: 048
     Dates: start: 20120312, end: 20151122
  2. CONCOR [Concomitant]
     Active Substance: BISOPROLOL FUMARATE
     Indication: HYPERTENSION
     Dosage: 2.5 MG, QD
     Route: 048
  3. SALOFALK//MESALAZINE [Concomitant]
     Active Substance: MESALAMINE
     Dosage: 1000 MG, QD
     Route: 048
  4. TEMESTA [Concomitant]
     Active Substance: LORAZEPAM
     Indication: PRODUCT USED FOR UNKNOWN INDICATION
     Dosage: 2.5 MG, QD
     Route: 048
  5. HADENSA [Concomitant]
     Dosage: UNK
     Route: 061
     Dates: start: 20151123
  6. CAL D VITA [Concomitant]
     Indication: ANTIBIOTIC THERAPY
     Dosage: 1 DF (1 TAB), QD
     Route: 048
  7. SALOFALK//MESALAZINE [Concomitant]
     Active Substance: MESALAMINE
     Indication: CROHN^S DISEASE
     Dosage: 1000 MG, QD
     Route: 048
     Dates: start: 2007, end: 20130223

REACTIONS (2)
  - Crohn^s disease [Recovered/Resolved]
  - Diarrhoea [Recovered/Resolved]

NARRATIVE: CASE EVENT DATE: 20140223
